FAERS Safety Report 17963895 (Version 2)
Quarter: 2022Q2

REPORT INFORMATION
  Report Type: Report from Study
  Country: US (occurrence: US)
  Receive Date: 20200630
  Receipt Date: 20220502
  Transmission Date: 20220721
  Serious: Yes (Hospitalization)
  Sender: FDA-Public Use
  Company Number: US-SHIRE-US202010643

PATIENT
  Sex: Male

DRUGS (12)
  1. TEDUGLUTIDE [Suspect]
     Active Substance: TEDUGLUTIDE
     Indication: Short-bowel syndrome
     Dosage: 0.72 MILLIGRAM, QD
     Route: 058
     Dates: start: 20200120
  2. TEDUGLUTIDE [Suspect]
     Active Substance: TEDUGLUTIDE
     Indication: Short-bowel syndrome
     Dosage: 0.72 MILLIGRAM, QD
     Route: 058
     Dates: start: 20200120
  3. TEDUGLUTIDE [Suspect]
     Active Substance: TEDUGLUTIDE
     Indication: Short-bowel syndrome
     Dosage: 0.72 MILLIGRAM, QD
     Route: 058
     Dates: start: 20200120
  4. TEDUGLUTIDE [Suspect]
     Active Substance: TEDUGLUTIDE
     Indication: Short-bowel syndrome
     Dosage: 0.72 MILLIGRAM, QD
     Route: 058
     Dates: start: 20200120
  5. TEDUGLUTIDE [Suspect]
     Active Substance: TEDUGLUTIDE
     Dosage: 0.72 MILLIGRAM, QD
     Route: 058
     Dates: start: 202001
  6. TEDUGLUTIDE [Suspect]
     Active Substance: TEDUGLUTIDE
     Dosage: 0.72 MILLIGRAM, QD
     Route: 058
     Dates: start: 202001
  7. TEDUGLUTIDE [Suspect]
     Active Substance: TEDUGLUTIDE
     Dosage: 0.72 MILLIGRAM, QD
     Route: 058
     Dates: start: 202001
  8. TEDUGLUTIDE [Suspect]
     Active Substance: TEDUGLUTIDE
     Dosage: 0.72 MILLIGRAM, QD
     Route: 058
     Dates: start: 202001
  9. TEDUGLUTIDE [Suspect]
     Active Substance: TEDUGLUTIDE
     Dosage: 0.72 MILLIGRAM, QD
     Route: 058
     Dates: start: 20220131
  10. TEDUGLUTIDE [Suspect]
     Active Substance: TEDUGLUTIDE
     Dosage: 0.72 MILLIGRAM, QD
     Route: 058
     Dates: start: 20220131
  11. TEDUGLUTIDE [Suspect]
     Active Substance: TEDUGLUTIDE
     Dosage: 0.72 MILLIGRAM, QD
     Route: 058
     Dates: start: 20220131
  12. TEDUGLUTIDE [Suspect]
     Active Substance: TEDUGLUTIDE
     Dosage: 0.72 MILLIGRAM, QD
     Route: 058
     Dates: start: 20220131

REACTIONS (4)
  - Rotavirus infection [Unknown]
  - Escherichia infection [Unknown]
  - Injection site reaction [Recovered/Resolved]
  - Product dose omission issue [Recovered/Resolved]
